FAERS Safety Report 10037767 (Version 1)
Quarter: 2014Q1

REPORT INFORMATION
  Report Type: Spontaneous
  Country: US (occurrence: None)
  Receive Date: 20140306
  Receipt Date: 20140306
  Transmission Date: 20141002
  Serious: Yes (Life-Threatening, Hospitalization, Other)
  Sender: FDA-Public Use
  Company Number: 163-21880-13080144

PATIENT
  Age: 54 Year
  Sex: Male
  Weight: 145.15 kg

DRUGS (7)
  1. REVLIMID [Suspect]
     Indication: PLASMA CELL MYELOMA
     Route: 048
     Dates: start: 20120110
  2. GLIPIZIDE (GLIPIZIDE) (UNKNOWN) [Concomitant]
  3. METFORMIN (METFORMIN) (UNKNOWN) [Concomitant]
  4. NIASPAN (NICOTINIC ACID) (UNKNOWN) [Concomitant]
  5. PROCARDIA (NIFEDIPINE) (UNKNOWN) [Concomitant]
  6. SIMVASTATIN (SIMVASTATIN) (UNKNOWN) [Concomitant]
  7. TOPROL (METOPROLOL SUCCINATE) (UNKNOWN) [Concomitant]

REACTIONS (1)
  - Pulmonary thrombosis [None]
